FAERS Safety Report 13690225 (Version 1)
Quarter: 2017Q2

REPORT INFORMATION
  Report Type: Spontaneous
  Country: US (occurrence: US)
  Receive Date: 20170626
  Receipt Date: 20170626
  Transmission Date: 20170830
  Serious: No
  Sender: FDA-Public Use
  Company Number: US-SUNOVION-2017SUN002579

PATIENT

DRUGS (3)
  1. LATUDA [Suspect]
     Active Substance: LURASIDONE HYDROCHLORIDE
     Dosage: 80 MG, QD
     Route: 048
  2. LATUDA [Suspect]
     Active Substance: LURASIDONE HYDROCHLORIDE
     Dosage: 20 MG, QD
     Route: 048
  3. LITHIUM. [Concomitant]
     Active Substance: LITHIUM

REACTIONS (10)
  - Drug ineffective [Unknown]
  - Anxiety [Unknown]
  - Feeling abnormal [Unknown]
  - Akathisia [Recovered/Resolved]
  - Panic attack [Unknown]
  - Discomfort [Unknown]
  - Insomnia [Unknown]
  - Nausea [Unknown]
  - Restlessness [Unknown]
  - Fatigue [Unknown]
